FAERS Safety Report 4587491-0 (Version None)
Quarter: 2005Q1

REPORT INFORMATION
  Report Type: 
  Country: None (occurrence: None)
  Receive Date: 20050215
  Receipt Date: 20050203
  Transmission Date: 20050727
  Serious: Yes (Hospitalization, Other)
  Sender: FDA-Public Use
  Company Number: 2005025731

PATIENT
  Age: 46 Year
  Sex: Female
  Weight: 95.709 kg

DRUGS (3)
  1. CELEBREX [Suspect]
     Indication: ARTHRITIS
     Dosage: 400 MG (200 MG, 1 IN 2 D), ORAL
     Route: 048
     Dates: end: 20020701
  2. ROFECOXIB [Suspect]
     Indication: ARTHRITIS
  3. ALL OTHER THERAPEUTIC PRODUCTS (ALL OTHER THERAPEUTIC PRODUCTS) [Concomitant]

REACTIONS (1)
  - CHEST PAIN [None]
